FAERS Safety Report 5247037-0 (Version None)
Quarter: 2007Q1

REPORT INFORMATION
  Report Type: 
  Country: None (occurrence: None)
  Receive Date: 20070226
  Receipt Date: 20070223
  Transmission Date: 20070707
  Serious: Yes (Disabling)
  Sender: FDA-Public Use
  Company Number: DE-GLAXOSMITHKLINE-D0052296A

PATIENT
  Age: 55 Year
  Sex: Male
  Weight: 85 kg

DRUGS (5)
  1. TELZIR [Suspect]
     Indication: HIV INFECTION CDC CATEGORY B3
     Dosage: 700MG TWICE PER DAY
     Route: 048
     Dates: start: 20041230
  2. NORVIR [Concomitant]
     Indication: HIV INFECTION CDC CATEGORY B3
     Dosage: 100MG TWICE PER DAY
     Route: 048
     Dates: start: 20011201
  3. VIREAD [Concomitant]
     Indication: HIV INFECTION CDC CATEGORY B3
     Dosage: 245MG PER DAY
     Route: 048
     Dates: start: 20030101
  4. VIDEX [Concomitant]
     Indication: HIV INFECTION CDC CATEGORY B3
     Dosage: 250MG IN THE MORNING
     Route: 048
     Dates: start: 19980501
  5. SAROTEN [Concomitant]
     Route: 065

REACTIONS (3)
  - BRADYPHRENIA [None]
  - DEPRESSION [None]
  - DISTURBANCE IN ATTENTION [None]
